FAERS Safety Report 11237427 (Version 2)
Quarter: 2015Q3

REPORT INFORMATION
  Report Type: Spontaneous
  Country: US (occurrence: US)
  Receive Date: 20150703
  Receipt Date: 20150716
  Transmission Date: 20151125
  Serious: Yes (Other)
  Sender: FDA-Public Use
  Company Number: US-BIOGENIDEC-2015BI090765

PATIENT
  Age: 49 Year
  Sex: Female

DRUGS (1)
  1. TYSABRI [Suspect]
     Active Substance: NATALIZUMAB
     Indication: MULTIPLE SCLEROSIS
     Route: 042
     Dates: start: 20130226

REACTIONS (7)
  - Mammoplasty [Unknown]
  - Impaired healing [Unknown]
  - Adverse event [Unknown]
  - Incision site erythema [Unknown]
  - Incision site inflammation [Unknown]
  - Burning sensation [Unknown]
  - Incision site pain [Unknown]

NARRATIVE: CASE EVENT DATE: 20150520
